FAERS Safety Report 5893172-3 (Version None)
Quarter: 2008Q3

REPORT INFORMATION
  Report Type: 
  Country: None (occurrence: None)
  Receive Date: 20080923
  Receipt Date: 20070709
  Transmission Date: 20090109
  Serious: No
  Sender: FDA-Public Use
  Company Number: US-ASTRAZENECA-2007UW15987

PATIENT
  Age: 68 Year
  Sex: Female
  Weight: 74.4 kg

DRUGS (6)
  1. SEROQUEL [Suspect]
     Indication: NERVOUSNESS
     Route: 048
  2. TRAZODONE HCL [Concomitant]
  3. NORVASC [Concomitant]
  4. LORTAB [Concomitant]
  5. KLONOPIN [Concomitant]
  6. ZOLOFT [Concomitant]

REACTIONS (5)
  - ARTHRITIS [None]
  - BURNING SENSATION [None]
  - PAIN IN EXTREMITY [None]
  - PRURITUS [None]
  - WEIGHT INCREASED [None]
